FAERS Safety Report 12964797 (Version 2)
Quarter: 2016Q4

REPORT INFORMATION
  Report Type: Spontaneous
  Country: IT (occurrence: IT)
  Receive Date: 20161122
  Receipt Date: 20161221
  Transmission Date: 20170207
  Serious: Yes (Other)
  Sender: FDA-Public Use
  Company Number: IT-JNJFOC-20161119085

PATIENT
  Age: 60 Year
  Sex: Female

DRUGS (9)
  1. YONDELIS [Suspect]
     Active Substance: TRABECTEDIN
     Indication: OVARIAN CANCER STAGE IV
     Route: 042
  2. LOSARTAN ACTAVIS [Concomitant]
     Active Substance: LOSARTAN
     Route: 048
  3. AMLODIPINE BESYLATE. [Concomitant]
     Active Substance: AMLODIPINE BESYLATE
     Route: 048
  4. YONDELIS [Suspect]
     Active Substance: TRABECTEDIN
     Indication: OVARIAN CANCER STAGE IV
     Route: 042
  5. YONDELIS [Suspect]
     Active Substance: TRABECTEDIN
     Indication: OVARIAN CANCER STAGE IV
     Route: 042
     Dates: start: 20150720, end: 20150820
  6. CLEXANE [Concomitant]
     Active Substance: ENOXAPARIN SODIUM
     Route: 065
  7. CAELYX [Suspect]
     Active Substance: DOXORUBICIN HYDROCHLORIDE
     Indication: OVARIAN CANCER STAGE IV
     Route: 042
  8. BENADON [Concomitant]
     Active Substance: PYRIDOXINE HYDROCHLORIDE
     Route: 048
  9. CAELYX [Suspect]
     Active Substance: DOXORUBICIN HYDROCHLORIDE
     Indication: OVARIAN CANCER STAGE IV
     Route: 042

REACTIONS (5)
  - Ascites [Recovered/Resolved]
  - Carbohydrate antigen 125 increased [Recovered/Resolved]
  - Jugular vein thrombosis [Recovered/Resolved]
  - Blood acid phosphatase increased [Recovered/Resolved]
  - Dry skin [Recovered/Resolved]

NARRATIVE: CASE EVENT DATE: 20150810
